FAERS Safety Report 21062284 (Version 1)
Quarter: 2022Q3

REPORT INFORMATION
  Report Type: Spontaneous
  Country: US (occurrence: US)
  Receive Date: 20220711
  Receipt Date: 20220711
  Transmission Date: 20221027
  Serious: No
  Sender: FDA-Public Use
  Company Number: US-SA-SAC20220705000087

PATIENT
  Age: 65 Year
  Sex: Male

DRUGS (7)
  1. DUPIXENT [Suspect]
     Active Substance: DUPILUMAB
     Indication: Dermatitis atopic
     Dosage: 300MG,QOW
     Route: 058
     Dates: start: 201812
  2. ATORVASTATIN CALCIUM [Concomitant]
     Active Substance: ATORVASTATIN CALCIUM
  3. FAMOTIDINE [Concomitant]
     Active Substance: FAMOTIDINE
  4. LISINOPRIL [Concomitant]
     Active Substance: LISINOPRIL
  5. FINASTERIDE [Concomitant]
     Active Substance: FINASTERIDE
  6. ASPIRIN [Concomitant]
     Active Substance: ASPIRIN
  7. PAIN RELIEVER PLUS [Concomitant]
     Active Substance: ACETAMINOPHEN\ASPIRIN\CAFFEINE

REACTIONS (3)
  - Gastrooesophageal reflux disease [Unknown]
  - Dysphonia [Unknown]
  - Weight decreased [Unknown]
